FAERS Safety Report 12356000 (Version 1)
Quarter: 2016Q2

REPORT INFORMATION
  Report Type: Spontaneous
  Country: US (occurrence: US)
  Receive Date: 20160511
  Receipt Date: 20160511
  Transmission Date: 20160815
  Serious: Yes (Life-Threatening, Other)
  Sender: FDA-Public Use
  Company Number: ADR-2015-01582

PATIENT
  Age: 57 Year
  Sex: Female

DRUGS (3)
  1. LIORESAL [Suspect]
     Active Substance: BACLOFEN
     Dosage: 12.2MCG/DAY
     Route: 037
     Dates: start: 20150723
  2. LIORESAL [Suspect]
     Active Substance: BACLOFEN
     Dosage: 150.2 MCG/DAY
     Route: 037
     Dates: start: 20150723, end: 20150723
  3. LIORESAL [Suspect]
     Active Substance: BACLOFEN
     Dosage: 361.6 MCG/DAY
     Route: 037
     Dates: end: 20150723

REACTIONS (3)
  - Adverse drug reaction [Unknown]
  - Unresponsive to stimuli [Unknown]
  - Device issue [None]

NARRATIVE: CASE EVENT DATE: 20150723
